FAERS Safety Report 8246833-5 (Version None)
Quarter: 2012Q1

REPORT INFORMATION
  Report Type: 
  Country: None (occurrence: None)
  Receive Date: 20120330
  Receipt Date: 20120326
  Transmission Date: 20120608
  Serious: No
  Sender: FDA-Public Use
  Company Number: US-PFIZER INC-2012078536

PATIENT
  Sex: Male
  Weight: 97.506 kg

DRUGS (4)
  1. VIAGRA [Suspect]
     Indication: PROSTATE CANCER
     Dosage: UNK
     Route: 048
  2. PRAVASTATIN [Concomitant]
     Indication: FLUID RETENTION
     Dosage: UNK
  3. ATENOLOL [Concomitant]
     Indication: HYPERTENSION
     Dosage: UNK, DAILY
     Route: 048
  4. METFORMIN [Concomitant]
     Indication: HYPERTENSION
     Dosage: UNK, DAILY
     Route: 048

REACTIONS (1)
  - RASH [None]
